FAERS Safety Report 21665490 (Version 1)
Quarter: 2022Q4

REPORT INFORMATION
  Report Type: Spontaneous
  Country: GB (occurrence: GB)
  Receive Date: 20221201
  Receipt Date: 20221201
  Transmission Date: 20230113
  Serious: Yes (Other)
  Sender: FDA-Public Use
  Company Number: None

PATIENT
  Age: 43 Year
  Sex: Male
  Weight: 93 kg

DRUGS (3)
  1. IBUPROFEN [Suspect]
     Active Substance: IBUPROFEN
     Indication: Ill-defined disorder
     Dosage: UNK
     Route: 065
     Dates: start: 20221104
  2. Octasa/Mesalazine [Concomitant]
     Indication: Ill-defined disorder
     Dosage: UNK, HS(INSERT ONE AT NIGHT) (MESALAZINE)
     Route: 065
     Dates: start: 20221104
  3. Octasa/Mesalazine [Concomitant]
     Dosage: 2 DOSAGE FORM, TID (TABLET) (OCTASA)
     Route: 065
     Dates: start: 20221104

REACTIONS (1)
  - Colitis [Unknown]

NARRATIVE: CASE EVENT DATE: 20221111
